FAERS Safety Report 26120739 (Version 2)
Quarter: 2025Q4

REPORT INFORMATION
  Report Type: Report from Study
  Country: AR (occurrence: AR)
  Receive Date: 20251204
  Receipt Date: 20251222
  Transmission Date: 20260118
  Serious: Yes (Hospitalization)
  Sender: AMGEN
  Company Number: AR-AMGEN-ARGSL2025237381

PATIENT
  Age: 64 Year
  Sex: Female

DRUGS (1)
  1. VECTIBIX [Suspect]
     Active Substance: PANITUMUMAB
     Indication: Colorectal cancer
     Dosage: UNK, QWK (THREE CONSECUTIVE WEDNESDAYS FOLLOWED BY ONE WEEK OF REST)
     Route: 065
     Dates: start: 20251030

REACTIONS (5)
  - Urinary tract infection [Unknown]
  - Dermatitis allergic [Recovering/Resolving]
  - Acne [Unknown]
  - Malaise [Unknown]
  - Off label use [Unknown]

NARRATIVE: CASE EVENT DATE: 20250101
